FAERS Safety Report 12124161 (Version 1)
Quarter: 2016Q1

REPORT INFORMATION
  Report Type: Spontaneous
  Country: MX (occurrence: MX)
  Receive Date: 20160228
  Receipt Date: 20160228
  Transmission Date: 20160526
  Serious: Yes (Death)
  Sender: FDA-Public Use
  Company Number: MX-ABBVIE-16K-107-1568837-00

PATIENT
  Sex: Female

DRUGS (1)
  1. HUMIRA [Suspect]
     Active Substance: ADALIMUMAB
     Indication: RHEUMATOID ARTHRITIS
     Route: 058

REACTIONS (5)
  - Fungal infection [Fatal]
  - Tuberculin test false positive [Fatal]
  - White blood cell count decreased [Fatal]
  - Immunosuppression [Fatal]
  - Haemoglobin decreased [Fatal]
